FAERS Safety Report 9558825 (Version 2)
Quarter: 2013Q4

REPORT INFORMATION
  Report Type: Spontaneous
  Country: US (occurrence: US)
  Receive Date: 20130926
  Receipt Date: 20131002
  Transmission Date: 20140711
  Serious: Yes (Hospitalization)
  Sender: FDA-Public Use
  Company Number: US-BAXTER-2013BAX037140

PATIENT
  Age: 54 Year
  Sex: Male

DRUGS (2)
  1. DIANEAL LOW CALCIUM [Suspect]
     Indication: PERITONEAL DIALYSIS
     Route: 033
     Dates: start: 201202, end: 201309
  2. DIANEAL LOW CALCIUM [Suspect]
     Route: 033
     Dates: start: 201202, end: 201309

REACTIONS (2)
  - Syncope [Recovering/Resolving]
  - Vomiting [Recovered/Resolved]
